FAERS Safety Report 23817083 (Version 1)
Quarter: 2024Q2

REPORT INFORMATION
  Report Type: Report from Study
  Country: US (occurrence: KR)
  Receive Date: 20240504
  Receipt Date: 20240504
  Transmission Date: 20240716
  Serious: Yes (Hospitalization)
  Sender: FDA-Public Use
  Company Number: KR-Saptalis Pharmaceuticals LLC-2156483

PATIENT
  Age: 32 Year
  Sex: Female

DRUGS (1)
  1. METFORMIN HYDROCHLORIDE [Suspect]
     Active Substance: METFORMIN HYDROCHLORIDE
     Indication: Blood glucose increased
     Route: 048

REACTIONS (4)
  - Blood lactate dehydrogenase increased [Recovered/Resolved]
  - MELAS syndrome [Unknown]
  - Dysphagia [Recovered/Resolved]
  - Status epilepticus [Recovered/Resolved]
